FAERS Safety Report 23060940 (Version 2)
Quarter: 2023Q4

REPORT INFORMATION
  Report Type: Report from Study
  Country: US (occurrence: US)
  Receive Date: 20231012
  Receipt Date: 20231103
  Transmission Date: 20240109
  Serious: Yes (Other)
  Sender: FDA-Public Use
  Company Number: US-BRISTOL-MYERS SQUIBB COMPANY-2023-131240

PATIENT
  Age: 61 Year
  Sex: Female
  Weight: 87.09 kg

DRUGS (1)
  1. ORENCIA [Suspect]
     Active Substance: ABATACEPT
     Indication: Rheumatoid arthritis
     Dosage: 2ND DOSE
     Route: 058
     Dates: start: 202309

REACTIONS (5)
  - Device safety feature issue [Unknown]
  - Device leakage [Unknown]
  - Injection site haemorrhage [Unknown]
  - Headache [Unknown]
  - Device operational issue [Unknown]

NARRATIVE: CASE EVENT DATE: 20230913
